FAERS Safety Report 8518146-5 (Version None)
Quarter: 2012Q3

REPORT INFORMATION
  Report Type: 
  Country: None (occurrence: None)
  Receive Date: 20120718
  Receipt Date: 20120306
  Transmission Date: 20120928
  Serious: No
  Sender: FDA-Public Use
  Company Number: US-BRISTOL-MYERS SQUIBB COMPANY-16125452

PATIENT
  Age: 66 Year
  Sex: Female
  Weight: 45 kg

DRUGS (2)
  1. COUMADIN [Suspect]
     Indication: ATRIAL FIBRILLATION
     Dosage: 1DF:5 MG 6 DAYS/WEEK AND 2.5 MG 1 DAYS/WEEK STARTED 4 WEEKS AGO
     Route: 048
     Dates: start: 20110101
  2. COUMADIN [Suspect]
     Indication: PROPHYLAXIS
     Dosage: 1DF:5 MG 6 DAYS/WEEK AND 2.5 MG 1 DAYS/WEEK STARTED 4 WEEKS AGO
     Route: 048
     Dates: start: 20110101

REACTIONS (6)
  - ABNORMAL FAECES [None]
  - RASH [None]
  - CYANOSIS [None]
  - ANORECTAL DISCOMFORT [None]
  - OEDEMA PERIPHERAL [None]
  - WEIGHT DECREASED [None]
